FAERS Safety Report 17875350 (Version 1)
Quarter: 2020Q2

REPORT INFORMATION
  Report Type: Spontaneous
  Country: ES (occurrence: ES)
  Receive Date: 20200609
  Receipt Date: 20200609
  Transmission Date: 20200714
  Serious: Yes (Other)
  Sender: FDA-Public Use
  Company Number: ES-TEVA-2020-ES-1245814

PATIENT
  Age: 33 Year
  Sex: Male

DRUGS (2)
  1. HIDROXICLOROQUINA SULFATO (2143SU) [Suspect]
     Active Substance: HYDROXYCHLOROQUINE SULFATE
     Indication: COVID-19 PNEUMONIA
     Route: 048
     Dates: start: 20200317
  2. KALETRA [Suspect]
     Active Substance: LOPINAVIR\RITONAVIR
     Indication: COVID-19 PNEUMONIA
     Dosage: 2 DOSAGE FORMS
     Route: 048
     Dates: start: 20200317, end: 20200321

REACTIONS (2)
  - Hypertriglyceridaemia [Recovered/Resolved]
  - Gamma-glutamyltransferase increased [Recovered/Resolved]

NARRATIVE: CASE EVENT DATE: 20200321
